FAERS Safety Report 8286256 (Version 2)
Quarter: 2012Q4

REPORT INFORMATION
  Report Type: Report from Study
  Country: US (occurrence: US)
  Receive Date: 20111213
  Receipt Date: 20121129
  Transmission Date: 20130627
  Serious: Yes (Death, Other)
  Sender: FDA-Public Use
  Company Number: US-ROCHE-1020880

PATIENT
  Age: 80 Year
  Sex: Male
  Weight: 68.1 kg

DRUGS (2)
  1. CAPECITABINE [Suspect]
     Indication: NEOPLASM MALIGNANT
     Route: 048
     Dates: start: 20110707
  2. CAPECITABINE [Suspect]
     Route: 048

REACTIONS (3)
  - Bile duct obstruction [Unknown]
  - Infection [Unknown]
  - Death [Fatal]
